FAERS Safety Report 8077615-5 (Version None)
Quarter: 2012Q1

REPORT INFORMATION
  Report Type: 
  Country: None (occurrence: None)
  Receive Date: 20120127
  Receipt Date: 20120119
  Transmission Date: 20120608
  Serious: Yes (Hospitalization)
  Sender: FDA-Public Use
  Company Number: FR-PFIZER INC-2011201474

PATIENT
  Age: 83 Year
  Sex: Male

DRUGS (11)
  1. PLAVIX [Concomitant]
     Dosage: 1 DF, 1X/DAY
  2. NEXIUM [Concomitant]
     Dosage: 1 DF, 1X/DAY
  3. AMLODIPINE BESYLATE [Suspect]
     Dosage: 5 MG, 2X/DAY
     Route: 048
     Dates: end: 20110630
  4. RAMIPRIL [Suspect]
     Dosage: 2.5 MG, 2X/DAY
     Route: 048
     Dates: end: 20110630
  5. ATARAX [Concomitant]
     Dosage: 2 DF, AS NEEDED
  6. NITROGLYCERIN [Suspect]
     Dosage: 1 DF (5 MG/24 HOURS), 1X/DAY
     Route: 062
     Dates: end: 20110702
  7. ASPIRIN [Concomitant]
     Dosage: 1 DF, 1X/DAY
  8. PRAVASTATIN [Suspect]
     Dosage: 40 MG, 1X/DAY
     Route: 048
     Dates: end: 20110702
  9. VALSARTAN  AND HYDROCHLOROTHIAZIDE [Suspect]
     Dosage: 1 DF (12.5 MG/160 MG), 1X/DAY
     Route: 048
     Dates: start: 20110201, end: 20110719
  10. METOPROLOL TARTRATE [Concomitant]
     Dosage: 0.25 DF, 2X/DAY
  11. MOVIPREP [Concomitant]
     Dosage: AS NEEDED (UP TO 3 DOSE FORMS PER DAY)

REACTIONS (4)
  - ECZEMA [None]
  - STAPHYLOCOCCAL BACTERAEMIA [None]
  - ACUTE PULMONARY OEDEMA [None]
  - ENDOCARDITIS BACTERIAL [None]
